FAERS Safety Report 5481412-4 (Version None)
Quarter: 2007Q4

REPORT INFORMATION
  Report Type: 
  Country: None (occurrence: None)
  Receive Date: 20071010
  Receipt Date: 20071009
  Transmission Date: 20080405
  Serious: Yes (Disabling)
  Sender: FDA-Public Use
  Company Number: A0686648A

PATIENT
  Age: 33 Year
  Sex: Male

DRUGS (3)
  1. REQUIP [Suspect]
     Indication: RESTLESS LEGS SYNDROME
     Dosage: 3.5MG AT NIGHT
     Route: 048
     Dates: start: 20070801
  2. OMEPRAZOLE [Suspect]
     Dosage: 60MG PER DAY
     Route: 048
     Dates: start: 20050101
  3. CLONAZEPAM [Concomitant]

REACTIONS (2)
  - DRUG INEFFECTIVE [None]
  - DRUG INTERACTION [None]
